FAERS Safety Report 8361790-9 (Version None)
Quarter: 2012Q2

REPORT INFORMATION
  Report Type: 
  Country: None (occurrence: None)
  Receive Date: 20120515
  Receipt Date: 20120507
  Transmission Date: 20120825
  Serious: Yes (Hospitalization)
  Sender: FDA-Public Use
  Company Number: US-GLAXOSMITHKLINE-A0976596A

PATIENT
  Age: 72 Year
  Sex: Female

DRUGS (22)
  1. ASPIRIN [Concomitant]
  2. KLONOPIN [Concomitant]
  3. ADVAIR DISKUS 100/50 [Suspect]
     Indication: ASTHMA
     Dosage: 1PUFF TWICE PER DAY
     Route: 055
     Dates: start: 20000101
  4. CYMBALTA [Concomitant]
  5. LAMICTAL [Concomitant]
  6. NOVOLIN N [Concomitant]
  7. CLONAZEPAM [Concomitant]
  8. METOPROLOL TARTRATE [Concomitant]
  9. ENULOSE [Concomitant]
  10. NEXIUM [Concomitant]
  11. DULCOLAX [Concomitant]
  12. TRAMADOL HYDROCHLORIDE [Concomitant]
  13. METFORMIN HCL [Concomitant]
  14. GUAIFENESIN [Concomitant]
  15. IBUPROFEN [Concomitant]
  16. ACETAMINOPHEN [Concomitant]
  17. SINGULAIR [Concomitant]
  18. NOVOLIN R [Concomitant]
  19. KAYEXALATE [Concomitant]
  20. PERPHENAZINE [Concomitant]
  21. DILTIAZEM [Concomitant]
  22. ATROVENT [Concomitant]

REACTIONS (8)
  - BRONCHITIS CHRONIC [None]
  - WHEEZING [None]
  - MYOCARDIAL INFARCTION [None]
  - COUGH [None]
  - DYSPHONIA [None]
  - HEADACHE [None]
  - DYSPNOEA [None]
  - LARYNGITIS [None]
